FAERS Safety Report 21177930 (Version 1)
Quarter: 2022Q3

REPORT INFORMATION
  Report Type: Spontaneous
  Country: FR (occurrence: FR)
  Receive Date: 20220805
  Receipt Date: 20220805
  Transmission Date: 20221026
  Serious: Yes (Hospitalization)
  Sender: FDA-Public Use
  Company Number: None

PATIENT
  Age: 87 Year
  Sex: Female

DRUGS (6)
  1. ALPRAZOLAM [Suspect]
     Active Substance: ALPRAZOLAM
     Dosage: 0.25 MG, 3X/DAY (1-1-1)
     Route: 048
     Dates: end: 20220120
  2. IMOVANE [Suspect]
     Active Substance: ZOPICLONE
     Dosage: 3.75 MG, 1X/DAY
     Route: 048
     Dates: end: 20220120
  3. MIANSERIN HYDROCHLORIDE [Suspect]
     Active Substance: MIANSERIN HYDROCHLORIDE
     Dosage: 10 MG, 1X/DAY (0-0-1)
     Route: 048
  4. LOXAPINE SUCCINATE [Suspect]
     Active Substance: LOXAPINE SUCCINATE
     Dosage: 25 UG, 3X/DAY (5 DROPS MORNING, NOON AND EVENING)
     Route: 048
     Dates: end: 20220120
  5. RISPERDAL [Suspect]
     Active Substance: RISPERIDONE
     Dosage: 1 MG, 2X/DAY (1/2-0-1/2)
     Route: 048
  6. PIPAMPERONE [Suspect]
     Active Substance: PIPAMPERONE
     Dosage: 40 MG/ML
     Route: 048
     Dates: end: 20220120

REACTIONS (1)
  - Disturbance in attention [Recovered/Resolved]
